FAERS Safety Report 8899340 (Version 1)
Quarter: 2012Q4

REPORT INFORMATION
  Report Type: 
  Country: US (occurrence: US)
  Receive Date: 20121109
  Receipt Date: 20121109
  Transmission Date: 20130627
  Serious: Yes (Other)
  Sender: FDA-Public Use
  Company Number: US-PFIZER INC-2012276789

PATIENT
  Age: 11 Year
  Sex: Male
  Weight: 38.1 kg

DRUGS (2)
  1. SERTRALINE HCL [Suspect]
     Indication: OBSESSIVE-COMPULSIVE DISORDER
     Dosage: 25 mg, daily
     Route: 048
     Dates: start: 201205
  2. SERTRALINE HCL [Suspect]
     Dosage: 37.5 mg, daily
     Dates: start: 2012

REACTIONS (2)
  - Coeliac disease [Not Recovered/Not Resolved]
  - Malaise [Not Recovered/Not Resolved]
